FAERS Safety Report 9734535 (Version 1)
Quarter: 2013Q4

REPORT INFORMATION
  Report Type: Spontaneous
  Country: US (occurrence: US)
  Receive Date: 20131206
  Receipt Date: 20131206
  Transmission Date: 20140711
  Serious: No
  Sender: FDA-Public Use
  Company Number: US-BIOGENIDEC-2013BI115513

PATIENT
  Sex: Female

DRUGS (1)
  1. AVONEX [Suspect]
     Indication: MULTIPLE SCLEROSIS
     Route: 030
     Dates: start: 20000511, end: 20110301

REACTIONS (5)
  - Abasia [Recovered/Resolved]
  - Mobility decreased [Recovered/Resolved]
  - Sensation of heaviness [Recovered/Resolved]
  - Adverse drug reaction [Recovered/Resolved]
  - Pain in extremity [Recovered/Resolved]
